FAERS Safety Report 7069097-7 (Version None)
Quarter: 2010Q4

REPORT INFORMATION
  Report Type: 
  Country: None (occurrence: None)
  Receive Date: 20101028
  Receipt Date: 20101022
  Transmission Date: 20110411
  Serious: Yes (Life-Threatening, Disabling)
  Sender: FDA-Public Use
  Company Number: A0794655A

PATIENT
  Age: 56 Year
  Sex: Female
  Weight: 90.9 kg

DRUGS (8)
  1. ARIXTRA [Suspect]
     Indication: DEEP VEIN THROMBOSIS
     Dosage: 7.5MG PER DAY
     Route: 058
     Dates: start: 20090501
  2. ACETAMINOPHEN [Concomitant]
  3. TRAMADOL HCL [Concomitant]
  4. BENADRYL [Concomitant]
  5. PEPCID [Concomitant]
  6. TUMS [Concomitant]
  7. NASACORT [Concomitant]
  8. TRIAMCINOLONE [Concomitant]

REACTIONS (19)
  - ANTICOAGULATION DRUG LEVEL BELOW THERAPEUTIC [None]
  - ARTHRALGIA [None]
  - CHILLS [None]
  - COAGULOPATHY [None]
  - DECREASED APPETITE [None]
  - DEEP VEIN THROMBOSIS [None]
  - DIARRHOEA [None]
  - DRUG INEFFECTIVE [None]
  - DRUG LEVEL INCREASED [None]
  - MALAISE [None]
  - MIGRAINE [None]
  - MYALGIA [None]
  - OEDEMA [None]
  - PRODUCT QUALITY ISSUE [None]
  - PULMONARY EMBOLISM [None]
  - PYREXIA [None]
  - SHOCK [None]
  - VOMITING [None]
  - WRONG TECHNIQUE IN DRUG USAGE PROCESS [None]
